FAERS Safety Report 7801334-0 (Version None)
Quarter: 2011Q4

REPORT INFORMATION
  Report Type: 
  Country: None (occurrence: None)
  Receive Date: 20111007
  Receipt Date: 20111005
  Transmission Date: 20120403
  Serious: No
  Sender: FDA-Public Use
  Company Number: US-PFIZER INC-2011238178

PATIENT
  Sex: Male

DRUGS (1)
  1. LIPITOR [Suspect]
     Indication: BLOOD CHOLESTEROL INCREASED
     Dosage: 10 MG, ONCE A DAY

REACTIONS (5)
  - FEELING ABNORMAL [None]
  - BOWEL MOVEMENT IRREGULARITY [None]
  - PRURITUS [None]
  - RASH PAPULAR [None]
  - DIARRHOEA [None]
